FAERS Safety Report 23085168 (Version 2)
Quarter: 2023Q4

REPORT INFORMATION
  Report Type: Report from Study
  Country: ES (occurrence: ES)
  Receive Date: 20231019
  Receipt Date: 20231101
  Transmission Date: 20240110
  Serious: Yes (Hospitalization)
  Sender: FDA-Public Use
  Company Number: ES-SA-SAC20231016000596

PATIENT
  Age: 62 Year
  Sex: Male
  Weight: 76.6 kg

DRUGS (8)
  1. ISATUXIMAB [Suspect]
     Active Substance: ISATUXIMAB
     Indication: Plasma cell myeloma
     Dosage: 760 MG
     Route: 041
     Dates: start: 20230929, end: 20230929
  2. ISATUXIMAB [Suspect]
     Active Substance: ISATUXIMAB
     Dosage: 760 MG
     Route: 041
     Dates: start: 20231006, end: 20231006
  3. BORTEZOMIB [Suspect]
     Active Substance: BORTEZOMIB
     Indication: Plasma cell myeloma
     Dosage: 2.5 MG
     Route: 058
     Dates: start: 20230929, end: 20230929
  4. BORTEZOMIB [Suspect]
     Active Substance: BORTEZOMIB
     Dosage: 2.5 MG
     Route: 058
     Dates: start: 20231009, end: 20231009
  5. DEXAMETHASONE [Suspect]
     Active Substance: DEXAMETHASONE
     Indication: Plasma cell myeloma
     Dosage: 40 MG
     Route: 048
     Dates: start: 20230929, end: 20230929
  6. DEXAMETHASONE [Suspect]
     Active Substance: DEXAMETHASONE
     Dosage: 40 MG
     Route: 048
     Dates: start: 20231010, end: 20231010
  7. IBERDOMIDE [Suspect]
     Active Substance: IBERDOMIDE
     Indication: Plasma cell myeloma
     Dosage: 1.6 MG
     Route: 048
     Dates: start: 20230929, end: 20230929
  8. IBERDOMIDE [Suspect]
     Active Substance: IBERDOMIDE
     Dosage: 1.6 MG
     Route: 048
     Dates: start: 20231011, end: 20231011

REACTIONS (1)
  - Thrombocytopenia [Recovered/Resolved]

NARRATIVE: CASE EVENT DATE: 20231011
